FAERS Safety Report 19839507 (Version 3)
Quarter: 2022Q1

REPORT INFORMATION
  Report Type: Spontaneous
  Country: US (occurrence: US)
  Receive Date: 20210916
  Receipt Date: 20220111
  Transmission Date: 20220424
  Serious: No
  Sender: FDA-Public Use
  Company Number: US-UNITED THERAPEUTICS-UNT-2021-017006

PATIENT
  Sex: Female
  Weight: 50.34 kg

DRUGS (4)
  1. REMODULIN [Suspect]
     Active Substance: TREPROSTINIL
     Indication: Pulmonary arterial hypertension
     Dosage: 0.010 ?G/KG, CONTINUING
     Route: 041
     Dates: start: 20210823
  2. REMODULIN [Suspect]
     Active Substance: TREPROSTINIL
     Dosage: 0.006 UNK, CONTINUING
     Route: 041
  3. UPTRAVI [Suspect]
     Active Substance: SELEXIPAG
     Indication: Pulmonary hypertension
     Dosage: 1600 ?G, BID (2 TIMES EVERY 1 DAY)
     Route: 048
     Dates: end: 2021
  4. CHLORHEXIDINE [Suspect]
     Active Substance: CHLORHEXIDINE
     Indication: Product used for unknown indication
     Dosage: UNK
     Route: 065

REACTIONS (5)
  - Maternal exposure during pregnancy [Recovered/Resolved]
  - Nausea [Unknown]
  - Headache [Unknown]
  - Dermatitis contact [Unknown]
  - Live birth [Recovered/Resolved]

NARRATIVE: CASE EVENT DATE: 20210101
